FAERS Safety Report 8438618-1 (Version None)
Quarter: 2012Q2

REPORT INFORMATION
  Report Type: 
  Country: None (occurrence: None)
  Receive Date: 20120615
  Receipt Date: 20120612
  Transmission Date: 20120825
  Serious: No
  Sender: FDA-Public Use
  Company Number: US-PFIZER INC-2012111204

PATIENT
  Sex: Female
  Weight: 113 kg

DRUGS (6)
  1. NORVASC [Concomitant]
     Dosage: 40 MG, DAILY
  2. BETAPACE [Concomitant]
     Dosage: 120 MG, 2X/DAY
  3. POTASSIUM [Concomitant]
     Dosage: 10 MG, DAILY
  4. CELEBREX [Suspect]
     Indication: ARTHRITIS
     Dosage: 200 MG, 2X/DAY
     Route: 048
     Dates: start: 20000101, end: 20090101
  5. BENAZEPRIL [Concomitant]
     Dosage: UNK, DAILY
  6. ASPIRIN [Concomitant]
     Indication: ANTICOAGULANT THERAPY
     Dosage: 81 MG, DAILY

REACTIONS (2)
  - GAIT DISTURBANCE [None]
  - PAIN [None]
